FAERS Safety Report 25363679 (Version 1)
Quarter: 2025Q2

REPORT INFORMATION
  Report Type: Spontaneous
  Country: CZ (occurrence: CZ)
  Receive Date: 20250527
  Receipt Date: 20250527
  Transmission Date: 20250717
  Serious: Yes (Life-Threatening, Other)
  Sender: NOVARTIS
  Company Number: CZ-002147023-NVSC2025CZ084503

PATIENT
  Age: 41 Year
  Sex: Male

DRUGS (2)
  1. IMATINIB [Suspect]
     Active Substance: IMATINIB
     Indication: Chronic myeloid leukaemia
     Route: 065
     Dates: start: 202206
  2. IMATINIB [Suspect]
     Active Substance: IMATINIB
     Route: 065

REACTIONS (2)
  - Haematological infection [Unknown]
  - Therapeutic response decreased [Unknown]
